FAERS Safety Report 5246668-1 (Version None)
Quarter: 2007Q1

REPORT INFORMATION
  Report Type: 
  Country: None (occurrence: None)
  Receive Date: 20070226
  Receipt Date: 20070213
  Transmission Date: 20070707
  Serious: Yes (Other)
  Sender: FDA-Public Use
  Company Number: FR-JNJFOC-20070203892

PATIENT
  Age: 33 Year
  Sex: Male

DRUGS (6)
  1. CONCERTA [Suspect]
     Indication: ATTENTION DEFICIT/HYPERACTIVITY DISORDER
     Route: 048
  2. ESPERAL [Interacting]
     Indication: DRUG USE FOR UNKNOWN INDICATION
     Route: 048
  3. BECOZYME [Concomitant]
  4. THIAMINE [Concomitant]
  5. FOLIC ACID [Concomitant]
  6. ALLOPURINOL SODIUM [Concomitant]

REACTIONS (3)
  - DISSOCIATION [None]
  - DRUG INTERACTION [None]
  - HALLUCINATION, VISUAL [None]
